FAERS Safety Report 6909290-4 (Version None)
Quarter: 2010Q3

REPORT INFORMATION
  Report Type: 
  Country: None (occurrence: None)
  Receive Date: 20100805
  Receipt Date: 20100723
  Transmission Date: 20110219
  Serious: Yes (Other)
  Sender: FDA-Public Use
  Company Number: PHHY2010BR48904

PATIENT
  Sex: Male

DRUGS (1)
  1. LEPONEX [Suspect]
     Dosage: 1 TABLET INGESTED ACCIDENTALLY

REACTIONS (4)
  - ACCIDENTAL EXPOSURE [None]
  - CONSTIPATION [None]
  - MOTOR DYSFUNCTION [None]
  - SOMNOLENCE [None]
